FAERS Safety Report 9459448 (Version 1)
Quarter: 2013Q3

REPORT INFORMATION
  Report Type: Spontaneous
  Country: FR (occurrence: FR)
  Receive Date: 20130815
  Receipt Date: 20130815
  Transmission Date: 20140515
  Serious: Yes (Other)
  Sender: FDA-Public Use
  Company Number: PHHY2013FR087814

PATIENT
  Age: 67 Year
  Sex: Female

DRUGS (4)
  1. COTAREG [Suspect]
     Dosage: UNK UKN, UNK
     Route: 048
     Dates: start: 200507, end: 201305
  2. HYPERIUM [Concomitant]
     Dosage: 1 MG, UNK
     Route: 048
     Dates: start: 200501
  3. METFORMIN [Concomitant]
     Dosage: UNK UKN, UNK
     Route: 048
     Dates: start: 2003
  4. SELOKEN [Concomitant]
     Dosage: UNK UKN, UNK
     Route: 048
     Dates: start: 2005

REACTIONS (2)
  - Colitis microscopic [Recovered/Resolved]
  - Diarrhoea [Recovered/Resolved]
